FAERS Safety Report 7073550-X (Version None)
Quarter: 2010Q4

REPORT INFORMATION
  Report Type: 
  Country: None (occurrence: None)
  Receive Date: 20101029
  Receipt Date: 20100708
  Transmission Date: 20110411
  Serious: No
  Sender: FDA-Public Use
  Company Number: A0869228A

PATIENT
  Age: 42 Year
  Sex: Female

DRUGS (8)
  1. ADVAIR DISKUS 100/50 [Suspect]
     Indication: ASTHMA
     Route: 055
     Dates: start: 20090701
  2. DIABETES MEDICATION [Concomitant]
  3. NEXIUM [Concomitant]
  4. NAPROXEN [Concomitant]
  5. LEXAPRO [Concomitant]
  6. LYRICA [Concomitant]
  7. ANTIBIOTIC [Concomitant]
  8. UNSPECIFIED MEDICATION [Concomitant]

REACTIONS (1)
  - DIZZINESS [None]
